FAERS Safety Report 9528020 (Version 1)
Quarter: 2013Q1

REPORT INFORMATION
  Report Type: Spontaneous
  Country: US (occurrence: None)
  Receive Date: 20130314
  Receipt Date: 20130314
  Transmission Date: 20140127
  Serious: Yes (Other)
  Sender: FDA-Public Use
  Company Number: 1301USA009842

PATIENT
  Age: 68 Year
  Sex: Male

DRUGS (3)
  1. VICTRELIS [Suspect]
     Dosage: UNK, ORAL
     Route: 048
     Dates: start: 20120921
  2. RIBAVIRIN [Suspect]
     Dosage: 1200 MG, QD, ORAL
     Route: 048
     Dates: start: 20120903
  3. PEGASYS [Suspect]
     Indication: HEPATITIS C
     Dosage: 180 MICROGRAM, QW
     Dates: start: 20120903

REACTIONS (1)
  - Syringe issue [None]
